FAERS Safety Report 22034897 (Version 1)
Quarter: 2023Q1

REPORT INFORMATION
  Report Type: Report from Study
  Country: US (occurrence: None)
  Receive Date: 20230224
  Receipt Date: 20230224
  Transmission Date: 20230418
  Serious: Yes (Hospitalization)
  Sender: FDA-Public Use
  Company Number: 2023A043135

PATIENT
  Sex: Male
  Weight: 52.2 kg

DRUGS (1)
  1. TAGRISSO [Suspect]
     Active Substance: OSIMERTINIB
     Indication: Non-small cell lung cancer
     Route: 048
     Dates: start: 20211227

REACTIONS (5)
  - Neuralgia [Unknown]
  - Neoplasm [Unknown]
  - Dyspnoea [Unknown]
  - Pain in extremity [Unknown]
  - Drug ineffective [Unknown]
